FAERS Safety Report 12202944 (Version 1)
Quarter: 2016Q1

REPORT INFORMATION
  Report Type: Spontaneous
  Country: GB (occurrence: GB)
  Receive Date: 20160323
  Receipt Date: 20160323
  Transmission Date: 20160526
  Serious: Yes (Other)
  Sender: FDA-Public Use
  Company Number: GB-SUN PHARMACEUTICAL INDUSTRIES LTD-2016R1-110581

PATIENT
  Age: 12 Year
  Sex: Male
  Weight: 35 kg

DRUGS (6)
  1. TOPIRAMATE. [Concomitant]
     Active Substance: TOPIRAMATE
     Indication: TONIC CONVULSION
     Dosage: 100 MG, BID
     Route: 065
  2. PHENYTOIN. [Concomitant]
     Active Substance: PHENYTOIN
     Indication: TONIC CONVULSION
     Dosage: UNK
     Route: 065
  3. BECOTIDE [Concomitant]
     Active Substance: BECLOMETHASONE DIPROPIONATE
     Indication: PRODUCT USED FOR UNKNOWN INDICATION
     Dosage: UNK
     Route: 065
  4. VALPROIC ACID. [Suspect]
     Active Substance: VALPROIC ACID
     Indication: TONIC CONVULSION
     Dosage: 17 MG/KG, DAILY
     Route: 065
  5. ABIDEC MULTIVITAMIN [Concomitant]
     Indication: PRODUCT USED FOR UNKNOWN INDICATION
     Route: 065
  6. PHENOBARBITONE [Concomitant]
     Active Substance: PHENOBARBITAL
     Indication: TONIC CONVULSION
     Dosage: UNK
     Route: 065

REACTIONS (1)
  - Renal tubular acidosis [Recovered/Resolved]
